FAERS Safety Report 15110548 (Version 2)
Quarter: 2018Q3

REPORT INFORMATION
  Report Type: Spontaneous
  Country: IN (occurrence: IN)
  Receive Date: 20180705
  Receipt Date: 20180806
  Transmission Date: 20181010
  Serious: Yes (Other)
  Sender: FDA-Public Use
  Company Number: IN-PFIZER INC-2018266733

PATIENT
  Age: 64 Year
  Sex: Male

DRUGS (1)
  1. CRIZALK [Suspect]
     Active Substance: CRIZOTINIB
     Indication: ALK GENE REARRANGEMENT POSITIVE
     Dosage: 250 MG, 2X/DAY
     Route: 048
     Dates: start: 20160624

REACTIONS (8)
  - Carcinoma in situ of penis [Recovered/Resolved]
  - Dyspnoea [Recovered/Resolved]
  - Oedema peripheral [Recovered/Resolved]
  - Second primary malignancy [Recovered/Resolved]
  - Dyspepsia [Recovered/Resolved]
  - Decreased appetite [Recovered/Resolved]
  - Asthenia [Recovered/Resolved]
  - Cough [Recovered/Resolved]

NARRATIVE: CASE EVENT DATE: 201607
